FAERS Safety Report 5874966-7 (Version None)
Quarter: 2008Q3

REPORT INFORMATION
  Report Type: 
  Country: None (occurrence: None)
  Receive Date: 20080908
  Receipt Date: 20080908
  Transmission Date: 20090109
  Serious: Yes (Life-Threatening, Hospitalization)
  Sender: FDA-Public Use
  Company Number: None

PATIENT
  Age: 92 Year
  Sex: Male
  Weight: 81.6475 kg

DRUGS (1)
  1. MOXIFLOXACIN HCL [Suspect]

REACTIONS (4)
  - CHROMATURIA [None]
  - HALLUCINATION [None]
  - SLEEP TERROR [None]
  - TACHYCARDIA [None]
